FAERS Safety Report 9169906 (Version 1)
Quarter: 2013Q1

REPORT INFORMATION
  Report Type: Spontaneous
  Country: US (occurrence: None)
  Receive Date: 20130314
  Receipt Date: 20130314
  Transmission Date: 20140127
  Serious: Yes (Hospitalization)
  Sender: FDA-Public Use
  Company Number: None

PATIENT
  Age: 82 Year
  Sex: Female
  Weight: 67 kg

DRUGS (7)
  1. WARFARIN [Suspect]
     Indication: ATRIAL FIBRILLATION
     Dosage: UNKNOWN   DAILY   PO?PRIOR TO ADMISSION??
     Route: 048
  2. CYANOCOBALAMIN [Concomitant]
  3. CHOLECALCIFEROL [Concomitant]
  4. ALENDRONATE [Concomitant]
  5. METOPROLOL [Concomitant]
  6. MULTIVITAMIN [Concomitant]
  7. ASCORBIC ACID [Concomitant]

REACTIONS (2)
  - Subdural haematoma [None]
  - Confusional state [None]
